FAERS Safety Report 9252174 (Version 1)
Quarter: 2013Q2

REPORT INFORMATION
  Report Type: Spontaneous
  Country: US (occurrence: US)
  Receive Date: 20130424
  Receipt Date: 20130424
  Transmission Date: 20140414
  Serious: Yes (Other)
  Sender: FDA-Public Use
  Company Number: US-PFIZER INC-2013126956

PATIENT
  Age: 61 Year
  Sex: Female
  Weight: 98.87 kg

DRUGS (5)
  1. LEVOXYL [Suspect]
     Indication: THYROID DISORDER
     Dosage: 25 UG, 1X/DAY
     Dates: start: 20130222, end: 20130419
  2. CABERGOLINE [Suspect]
     Indication: HYPOTHALAMO-PITUITARY DISORDER
     Dosage: HALF TABLET OF 0.5MG, 2X/WEEK
     Dates: start: 20130322
  3. CABERGOLINE [Suspect]
     Indication: BLOOD PROLACTIN INCREASED
  4. METFORMIN [Concomitant]
     Indication: BLOOD GLUCOSE ABNORMAL
     Dosage: 500 MG, 2X/DAY
  5. ADVIL [Concomitant]
     Dosage: UNK, AS NEEDED

REACTIONS (5)
  - Vaginal haemorrhage [Unknown]
  - Abdominal pain upper [Recovered/Resolved]
  - Abdominal discomfort [Recovering/Resolving]
  - Abdominal pain [Unknown]
  - Diarrhoea [Recovered/Resolved]
